FAERS Safety Report 25311520 (Version 1)
Quarter: 2025Q2

REPORT INFORMATION
  Report Type: Spontaneous
  Country: CN (occurrence: CN)
  Receive Date: 20250514
  Receipt Date: 20250514
  Transmission Date: 20250717
  Serious: Yes (Other)
  Sender: BAXTER
  Company Number: None

PATIENT
  Age: 50 Year
  Sex: Female
  Weight: 50 kg

DRUGS (4)
  1. CYCLOPHOSPHAMIDE [Suspect]
     Active Substance: CYCLOPHOSPHAMIDE
     Indication: Breast cancer female
     Dosage: 0.9 G, QD
     Route: 041
     Dates: start: 20250422, end: 20250422
  2. SODIUM CHLORIDE [Suspect]
     Active Substance: SODIUM CHLORIDE
     Dosage: 0.9 % SODIUM CHLORIDE INJECTION 45 ML + CYCLOPHOSPHAMIDE FOR INJECTION 0.9 G, ONCE A DAY, IV DRIP, O
     Route: 041
     Dates: start: 20250422, end: 20250422
  3. SODIUM CHLORIDE [Suspect]
     Active Substance: SODIUM CHLORIDE
     Dosage: 0.9% SODIUM CHLORIDE INJECTION 250 ML + DOCETAXEL INJECTION 115 MG, ONCE A DAY, IV DRIP, ONCE
     Route: 041
     Dates: start: 20250422, end: 20250422
  4. DOCETAXEL [Suspect]
     Active Substance: DOCETAXEL
     Indication: Breast cancer female
     Dosage: 115 MG, QD
     Route: 041
     Dates: start: 20250422, end: 20250422

REACTIONS (1)
  - Hepatic function abnormal [Recovering/Resolving]

NARRATIVE: CASE EVENT DATE: 20250430
